FAERS Safety Report 7936009-0 (Version None)
Quarter: 2011Q4

REPORT INFORMATION
  Report Type: 
  Country: None (occurrence: None)
  Receive Date: 20111123
  Receipt Date: 20111117
  Transmission Date: 20120403
  Serious: Yes (Other)
  Sender: FDA-Public Use
  Company Number: US-JNJFOC-20110706036

PATIENT
  Sex: Male

DRUGS (15)
  1. LEVAQUIN [Suspect]
     Indication: HERNIA REPAIR
     Route: 048
  2. LEVAQUIN [Suspect]
     Indication: SINUSITIS
     Route: 048
  3. LEVAQUIN [Suspect]
     Indication: URINARY TRACT INFECTION
     Route: 048
  4. FINASTERIDE [Concomitant]
     Indication: BENIGN PROSTATIC HYPERPLASIA
  5. LEVAQUIN [Suspect]
     Indication: COLITIS
     Route: 048
  6. LEVAQUIN [Suspect]
     Route: 042
  7. LEVAQUIN [Suspect]
     Route: 042
  8. LEVAQUIN [Suspect]
     Route: 042
  9. LEVAQUIN [Suspect]
     Route: 042
  10. LEVAQUIN [Suspect]
     Indication: BENIGN PROSTATIC HYPERPLASIA
     Route: 048
  11. LEVAQUIN [Suspect]
     Indication: PROSTATITIS
     Route: 042
  12. LEVAQUIN [Suspect]
     Indication: H1N1 INFLUENZA
     Route: 048
  13. LEVAQUIN [Suspect]
     Indication: PROSTATE INFECTION
     Route: 048
  14. LEVAQUIN [Suspect]
     Route: 042
  15. LEVAQUIN [Suspect]
     Route: 042

REACTIONS (6)
  - HYPOAESTHESIA [None]
  - JOINT INJURY [None]
  - MENISCUS LESION [None]
  - TENDON DISORDER [None]
  - TENDON RUPTURE [None]
  - TENDONITIS [None]
